FAERS Safety Report 10523810 (Version 1)
Quarter: 2014Q4

REPORT INFORMATION
  Report Type: Spontaneous
  Country: US (occurrence: None)
  Receive Date: 20141015
  Receipt Date: 20141015
  Transmission Date: 20150528
  Serious: No
  Sender: FDA-Public Use
  Company Number: None

PATIENT

DRUGS (2)
  1. MIDAZOLAM HCL [Suspect]
     Active Substance: MIDAZOLAM HYDROCHLORIDE
     Dosage: INJECTION, 2 MG/2 ML, SINGLE DOSE VIAL
  2. FUROSEMIDE HOSPIRA, INC. [Suspect]
     Active Substance: FUROSEMIDE
     Dosage: INJECTABLE, INJECTION, 20 MG (10MG/ML), VIAL, 2 ML

REACTIONS (1)
  - Product label confusion [None]
